FAERS Safety Report 19877442 (Version 3)
Quarter: 2021Q4

REPORT INFORMATION
  Report Type: Spontaneous
  Country: GB (occurrence: GB)
  Receive Date: 20210923
  Receipt Date: 20211022
  Transmission Date: 20220303
  Serious: Yes (Hospitalization, Other)
  Sender: FDA-Public Use
  Company Number: GB-BAYER-2021-213436

PATIENT
  Age: 14 Year
  Sex: Male

DRUGS (1)
  1. NEXAVAR [Suspect]
     Active Substance: SORAFENIB
     Indication: Desmoid tumour
     Dosage: 400 MG, QD
     Dates: start: 20200925

REACTIONS (3)
  - Iridocyclitis [Recovered/Resolved]
  - Latent tuberculosis [Recovered/Resolved]
  - Off label use [None]

NARRATIVE: CASE EVENT DATE: 20200925
